FAERS Safety Report 24340249 (Version 10)
Quarter: 2025Q2

REPORT INFORMATION
  Report Type: Spontaneous
  Country: BG (occurrence: BG)
  Receive Date: 20240919
  Receipt Date: 20250421
  Transmission Date: 20250716
  Serious: Yes (Life-Threatening, Hospitalization, Other)
  Sender: MYLAN
  Company Number: BG-EGIS-HUN-2024-1111

PATIENT
  Age: 88 Year
  Sex: Female

DRUGS (10)
  1. AMLODIPINE [Suspect]
     Active Substance: AMLODIPINE BESYLATE
     Indication: Myocardial ischaemia
     Dosage: 5 MILLIGRAM, BID
     Dates: start: 2015
  2. AMLODIPINE [Suspect]
     Active Substance: AMLODIPINE BESYLATE
     Indication: Hypertension
  3. BISOPROLOL [Suspect]
     Active Substance: BISOPROLOL
     Indication: Myocardial ischaemia
     Dosage: 5 MILLIGRAM, BID
     Dates: start: 2015
  4. BISOPROLOL [Suspect]
     Active Substance: BISOPROLOL
     Indication: Hypertension
  5. CLOPIDOGREL [Suspect]
     Active Substance: CLOPIDOGREL BISULFATE
     Indication: Ischaemic stroke
     Dosage: 75 MILLIGRAM, QD
     Dates: start: 2015
  6. CLOPIDOGREL [Suspect]
     Active Substance: CLOPIDOGREL BISULFATE
     Indication: Cardiovascular event prophylaxis
  7. NICERGOLINE [Suspect]
     Active Substance: NICERGOLINE
     Indication: Ischaemic stroke
     Dosage: 10 MILLIGRAM, Q8H
     Dates: start: 2015
  8. NICERGOLINE [Suspect]
     Active Substance: NICERGOLINE
     Indication: Cardiovascular event prophylaxis
  9. LISINOPRIL [Concomitant]
     Active Substance: LISINOPRIL
     Indication: Myocardial ischaemia
     Dosage: 10 MILLIGRAM, BID
     Dates: start: 2015
  10. LISINOPRIL [Concomitant]
     Active Substance: LISINOPRIL
     Indication: Hypertension

REACTIONS (14)
  - Basal cell carcinoma [Unknown]
  - Tumour inflammation [Unknown]
  - Scab [Unknown]
  - Skin ulcer haemorrhage [Unknown]
  - Skin wound [Unknown]
  - Malignant melanoma of eyelid [Unknown]
  - Inflammation [Unknown]
  - Desmoplastic melanoma [Unknown]
  - Telangiectasia [Unknown]
  - Skin ulcer [Unknown]
  - Skin lesion [Unknown]
  - Impaired healing [Unknown]
  - Suspected product contamination [Unknown]
  - Off label use [Unknown]

NARRATIVE: CASE EVENT DATE: 20200101
